FAERS Safety Report 5407264-6 (Version None)
Quarter: 2007Q3

REPORT INFORMATION
  Report Type: 
  Country: None (occurrence: None)
  Receive Date: 20070807
  Receipt Date: 20070803
  Transmission Date: 20080115
  Serious: Yes (Other)
  Sender: FDA-Public Use
  Company Number: B0481956A

PATIENT
  Age: 75 Year
  Sex: Female

DRUGS (3)
  1. VALTREX [Suspect]
     Indication: HERPES ZOSTER
     Dosage: 1000MG THREE TIMES PER DAY
     Route: 048
     Dates: start: 20070709, end: 20070715
  2. CELESTAMINE [Concomitant]
     Route: 048
  3. ALLEGRA [Concomitant]
     Route: 048

REACTIONS (1)
  - AGRANULOCYTOSIS [None]
